FAERS Safety Report 4447140-9 (Version None)
Quarter: 2004Q3

REPORT INFORMATION
  Report Type: 
  Country: None (occurrence: None)
  Receive Date: 20040813
  Receipt Date: 20040603
  Transmission Date: 20050211
  Serious: No
  Sender: FDA-Public Use
  Company Number: S04-USA-03629-01

PATIENT
  Age: 79 Year
  Sex: Male

DRUGS (10)
  1. NAMENDA [Suspect]
     Indication: DEMENTIA
     Dosage: 5 MG QD PO
     Route: 048
     Dates: start: 20040508, end: 20040514
  2. NAMENDA [Suspect]
     Indication: DEMENTIA
     Dosage: 10 MG QD PO
     Route: 048
     Dates: start: 20040515, end: 20040516
  3. NAMENDA [Suspect]
     Indication: DEMENTIA
     Dosage: 5 MG QD PO
     Route: 048
     Dates: start: 20040517
  4. ARICEPT [Concomitant]
  5. ATENOLOL [Concomitant]
  6. GLUCOSAMINE [Concomitant]
  7. VITAMIN E [Concomitant]
  8. MULTI-VITAMIN [Concomitant]
  9. CALCIUM [Concomitant]
  10. FOSAMAX [Concomitant]

REACTIONS (2)
  - CONFUSIONAL STATE [None]
  - DIZZINESS [None]
